FAERS Safety Report 6705328-8 (Version None)
Quarter: 2010Q2

REPORT INFORMATION
  Report Type: 
  Country: None (occurrence: None)
  Receive Date: 20100501
  Receipt Date: 20100420
  Transmission Date: 20101027
  Serious: Yes (Hospitalization, Other)
  Sender: FDA-Public Use
  Company Number: US-ELI_LILLY_AND_COMPANY-US201004005881

PATIENT
  Age: 54 Year
  Sex: Male

DRUGS (9)
  1. EFFIENT [Suspect]
     Indication: STENT PLACEMENT
     Dosage: 10 MG, DAILY (1/D)
     Dates: start: 20100101
  2. ASPIRIN [Concomitant]
  3. LISINOPRIL [Concomitant]
  4. METFORMIN [Concomitant]
  5. LOPRESSOR [Concomitant]
  6. CENTRUM /00554501/ [Concomitant]
  7. PRAVACHOL [Concomitant]
  8. TRAZODONE HCL [Concomitant]
  9. NITRO /00003201/ [Concomitant]
     Dosage: 1 D/F, UNKNOWN
     Route: 060

REACTIONS (1)
  - PANCREATITIS [None]
